FAERS Safety Report 9643753 (Version 1)
Quarter: 2013Q4

REPORT INFORMATION
  Report Type: Spontaneous
  Country: US (occurrence: US)
  Receive Date: 20131024
  Receipt Date: 20131024
  Transmission Date: 20140711
  Serious: Yes (Hospitalization, Other)
  Sender: FDA-Public Use
  Company Number: US-PFIZER INC-2013304051

PATIENT
  Age: 52 Year
  Sex: Female
  Weight: 47.6 kg

DRUGS (3)
  1. CHANTIX [Suspect]
     Indication: SMOKING CESSATION THERAPY
     Dosage: UNK
     Dates: start: 2011
  2. CHANTIX [Suspect]
     Dosage: UNK
  3. CHANTIX [Suspect]
     Dosage: UNK
     Dates: start: 2013, end: 201310

REACTIONS (9)
  - Overdose [Unknown]
  - Suicidal behaviour [Unknown]
  - Self injurious behaviour [Unknown]
  - Renal disorder [Unknown]
  - Mania [Unknown]
  - Depression [Unknown]
  - Anxiety [Unknown]
  - Physical assault [Unknown]
  - Anger [Unknown]
